FAERS Safety Report 4978758-2 (Version None)
Quarter: 2006Q2

REPORT INFORMATION
  Report Type: 
  Country: None (occurrence: None)
  Receive Date: 20060417
  Receipt Date: 20060403
  Transmission Date: 20061013
  Serious: No
  Sender: FDA-Public Use
  Company Number: 13621

PATIENT
  Age: 41 Year
  Sex: Male

DRUGS (3)
  1. PAMIDRONATE DISODIUM [Suspect]
     Indication: ANKYLOSING SPONDYLITIS
     Dosage: 60 MG ONCE IV
     Route: 042
     Dates: start: 20060117, end: 20060117
  2. SULFASALAZINE [Concomitant]
  3. DICLOFENAC SODIUM [Concomitant]

REACTIONS (5)
  - ARTHRALGIA [None]
  - CONDITION AGGRAVATED [None]
  - MUSCULOSKELETAL STIFFNESS [None]
  - MYALGIA [None]
  - PYREXIA [None]
